FAERS Safety Report 9556215 (Version 2)
Quarter: 2014Q3

REPORT INFORMATION
  Report Type: Report from Study
  Country: CA (occurrence: CA)
  Receive Date: 20130926
  Receipt Date: 20140902
  Transmission Date: 20150326
  Serious: Yes (Other)
  Sender: FDA-Public Use
  Company Number: CA-JNJFOC-20130912304

PATIENT
  Sex: Male
  Weight: 83 kg

DRUGS (3)
  1. SALOFALK [Concomitant]
     Active Substance: MESALAMINE
     Dosage: AS NEEDED (ANTIINFLAMMATORY)
     Route: 065
  2. MEZAVANT [Concomitant]
     Active Substance: MESALAMINE
     Indication: COLITIS
     Dosage: 4 PILLS
     Route: 065
  3. REMICADE [Suspect]
     Active Substance: INFLIXIMAB
     Indication: COLITIS ULCERATIVE
     Route: 042
     Dates: start: 20120719

REACTIONS (1)
  - Testis cancer [Recovering/Resolving]
